FAERS Safety Report 8116989-3 (Version None)
Quarter: 2012Q1

REPORT INFORMATION
  Report Type: 
  Country: None (occurrence: None)
  Receive Date: 20120206
  Receipt Date: 20120125
  Transmission Date: 20120608
  Serious: Yes (Hospitalization)
  Sender: FDA-Public Use
  Company Number: EG-ROCHE-1036459

PATIENT
  Age: 41 Year
  Sex: Female

DRUGS (5)
  1. FLUTICASONE PROPIONATE/SALMETEROL [Concomitant]
  2. QUIBRON [Concomitant]
  3. ALVESCO [Concomitant]
  4. XOLAIR [Suspect]
     Indication: ASTHMA
     Route: 058
  5. SINGULAIR [Concomitant]

REACTIONS (1)
  - ASTHMA [None]
